FAERS Safety Report 9330128 (Version 2)
Quarter: 2013Q4

REPORT INFORMATION
  Report Type: Spontaneous
  Country: US (occurrence: US)
  Receive Date: 20130604
  Receipt Date: 20131119
  Transmission Date: 20140711
  Serious: Yes (Hospitalization)
  Sender: FDA-Public Use
  Company Number: US-B.I. PHARMACEUTICALS,INC./RIDGEFIELD-2013-BI-15584BP

PATIENT
  Age: 81 Year
  Sex: Male
  Weight: 96.16 kg

DRUGS (12)
  1. PRADAXA [Suspect]
     Indication: ANTICOAGULANT THERAPY
     Dosage: 300 MG
     Route: 048
     Dates: start: 20110223, end: 20110721
  2. PRADAXA [Suspect]
     Indication: ATRIAL FIBRILLATION
  3. OMEPRAZOLE [Concomitant]
     Dosage: 20 MG
     Route: 048
  4. PRAVASTATIN [Concomitant]
     Dosage: 10 MG
     Route: 048
  5. AVODART [Concomitant]
     Dosage: 0.5 MG
     Route: 048
  6. OS-CAL D [Concomitant]
     Route: 048
  7. MULTIVITAMIN [Concomitant]
     Route: 048
  8. JANUVIA [Concomitant]
     Dosage: 100 MG
     Route: 048
  9. GLUCOTROL XL [Concomitant]
     Dosage: 15 MG
     Route: 048
  10. AMIODARONE [Concomitant]
     Dosage: 100 MG
  11. LASIX [Concomitant]
     Dosage: 40 MG
     Route: 048
  12. MILK OF MAGNESIA [Concomitant]
     Indication: CONSTIPATION

REACTIONS (3)
  - Gastrointestinal haemorrhage [Unknown]
  - Anaemia [Unknown]
  - Coagulopathy [Recovered/Resolved]
